FAERS Safety Report 4497941-6 (Version None)
Quarter: 2004Q4

REPORT INFORMATION
  Report Type: 
  Country: None (occurrence: None)
  Receive Date: 20041105
  Receipt Date: 20041028
  Transmission Date: 20050328
  Serious: Yes (Other)
  Sender: FDA-Public Use
  Company Number: 200420478BWH

PATIENT

DRUGS (3)
  1. DTIC-DOME [Suspect]
     Indication: MALIGNANT MELANOMA
     Dosage: INTRAVENOUS
     Route: 042
  2. TAMOXIFEN CITRATE [Suspect]
  3. TAMOXIFEN CITRATE [Concomitant]

REACTIONS (2)
  - MALIGNANT MELANOMA [None]
  - NEOPLASM RECURRENCE [None]
